FAERS Safety Report 14826122 (Version 1)
Quarter: 2018Q2

REPORT INFORMATION
  Report Type: Spontaneous
  Country: US (occurrence: US)
  Receive Date: 20180430
  Receipt Date: 20180430
  Transmission Date: 20180711
  Serious: No
  Sender: FDA-Public Use
  Company Number: US-009507513-1804USA002977

PATIENT
  Sex: Female
  Weight: 77.1 kg

DRUGS (1)
  1. NUVARING [Suspect]
     Active Substance: ETHINYL ESTRADIOL\ETONOGESTREL
     Indication: CONTRACEPTION
     Dosage: 3 WEEKS INSIDE AND 1 WEEK BREAK
     Route: 067
     Dates: start: 201712

REACTIONS (1)
  - Fungal infection [Unknown]
